FAERS Safety Report 21083134 (Version 3)
Quarter: 2022Q3

REPORT INFORMATION
  Report Type: Spontaneous
  Country: PE (occurrence: PE)
  Receive Date: 20220714
  Receipt Date: 20220919
  Transmission Date: 20221027
  Serious: Yes (Other)
  Sender: FDA-Public Use
  Company Number: PE-PFIZER INC-PV202200011385

PATIENT
  Age: 68 Year
  Sex: Male

DRUGS (6)
  1. SUTENT [Suspect]
     Active Substance: SUNITINIB MALATE
     Indication: Gastrointestinal stromal tumour
     Dosage: 50 MG, DAILY (4X2 SCHEME)
     Route: 048
     Dates: start: 20220523
  2. TELMISARTAN [Concomitant]
     Active Substance: TELMISARTAN
  3. METFORMIN\SITAGLIPTIN [Concomitant]
     Active Substance: METFORMIN\SITAGLIPTIN
  4. DAPAGLIFLOZIN PROPANEDIOL\METFORMIN HYDROCHLORIDE [Concomitant]
     Active Substance: DAPAGLIFLOZIN PROPANEDIOL\METFORMIN HYDROCHLORIDE
  5. FOLIC ACID [Concomitant]
     Active Substance: FOLIC ACID
  6. VITAMIN B COMPLEX [Concomitant]
     Active Substance: CYANOCOBALAMIN\DEXPANTHENOL\NIACINAMIDE\PYRIDOXINE HYDROCHLORIDE\RIBOFLAVIN 5^-PHOSPHATE SODIUM\THIA

REACTIONS (25)
  - Paralysis [Recovered/Resolved]
  - Oropharyngeal pain [Recovered/Resolved]
  - Oesophageal pain [Recovered/Resolved]
  - Yellow skin [Recovered/Resolved]
  - Odynophagia [Recovered/Resolved]
  - Pharyngeal hypoaesthesia [Recovered/Resolved]
  - Throat tightness [Recovered/Resolved]
  - Blister [Not Recovered/Not Resolved]
  - Skin lesion [Not Recovered/Not Resolved]
  - Eyelid injury [Recovered/Resolved]
  - Dry skin [Recovered/Resolved]
  - Abdominal discomfort [Recovered/Resolved]
  - Tracheal pain [Recovered/Resolved]
  - Oesophagitis [Recovered/Resolved]
  - Pharyngeal inflammation [Recovered/Resolved]
  - Fatigue [Recovered/Resolved]
  - Eructation [Recovering/Resolving]
  - Anal haemorrhage [Recovered/Resolved]
  - Dyspnoea [Recovering/Resolving]
  - Platelet count decreased [Not Recovered/Not Resolved]
  - Urticaria [Not Recovered/Not Resolved]
  - Constipation [Not Recovered/Not Resolved]
  - Abnormal faeces [Not Recovered/Not Resolved]
  - Flatulence [Not Recovered/Not Resolved]
  - Gastrointestinal disorder [Not Recovered/Not Resolved]

NARRATIVE: CASE EVENT DATE: 20220101
